FAERS Safety Report 6086697-1 (Version None)
Quarter: 2009Q1

REPORT INFORMATION
  Report Type: 
  Country: None (occurrence: None)
  Receive Date: 20090217
  Receipt Date: 20090202
  Transmission Date: 20090719
  Serious: Yes (Death)
  Sender: FDA-Public Use
  Company Number: CHPA2009US01619

PATIENT
  Age: 40 Year
  Sex: Female

DRUGS (7)
  1. DIPHENHYDRAMINE HCL [Suspect]
  2. DEXTROMETHORPHAN HYDROBROMIDE [Suspect]
  3. CODEINE SUL TAB [Suspect]
  4. CYCLOBENZAPRINE [Suspect]
  5. TRAZODONE HCL [Suspect]
  6. CITALOPRAM HYDROBROMIDE [Suspect]
  7. OLANZAPINE [Suspect]

REACTIONS (3)
  - CARDIAC ARREST [None]
  - COMPLETED SUICIDE [None]
  - RESPIRATORY ARREST [None]
